FAERS Safety Report 19306259 (Version 8)
Quarter: 2023Q1

REPORT INFORMATION
  Report Type: Spontaneous
  Country: CA (occurrence: CA)
  Receive Date: 20210525
  Receipt Date: 20230127
  Transmission Date: 20230417
  Serious: Yes (Hospitalization, Other)
  Sender: FDA-Public Use
  Company Number: CA-PFIZER INC-2021476072

PATIENT
  Age: 58 Year
  Sex: Female
  Weight: 37.2 kg

DRUGS (7)
  1. IBRANCE [Suspect]
     Active Substance: PALBOCICLIB
     Dosage: 125 MG, 1X/DAY (21 DAYS ON, 7 DAYS OFF)
     Route: 048
  2. IBRANCE [Suspect]
     Active Substance: PALBOCICLIB
     Dosage: 125 MG, 1X/DAY (21 DAYS ON, 7 DAYS OFF)
     Route: 048
     Dates: start: 20210526
  3. IBRANCE [Suspect]
     Active Substance: PALBOCICLIB
     Dosage: 100 MG, 1X/DAY (3 WEEKS ON 1 WEEK OFF)
     Route: 048
  4. IBRANCE [Suspect]
     Active Substance: PALBOCICLIB
     Dosage: 100 MG, 1X/DAY (3 WEEKS ON 1 WEEK OFF)
     Route: 048
  5. IBRANCE [Suspect]
     Active Substance: PALBOCICLIB
     Dosage: 125 MG, DAILY FROM DAYS 1 TO 21 , THEN 14 DAYS OFF (3 WEEKS ON, 2 WEEKS OFF)
     Route: 048
     Dates: start: 20210526
  6. FEMARA [Concomitant]
     Active Substance: LETROZOLE
     Dosage: 2.5 MG, 1X/DAY (2.5 MG ORAL ONCE DAILY SCH) (TAKE 2.5 MG LETROZOLE DAILY)
     Route: 048
  7. LETROZOLE [Concomitant]
     Active Substance: LETROZOLE
     Dosage: 2.5 MG
     Route: 048

REACTIONS (9)
  - Pulmonary oedema [Unknown]
  - Lung disorder [Unknown]
  - Pneumonia [Unknown]
  - Pneumothorax [Unknown]
  - Off label use [Unknown]
  - Weight decreased [Unknown]
  - Weight increased [Unknown]
  - Dyspnoea [Recovering/Resolving]
  - Body surface area increased [Unknown]

NARRATIVE: CASE EVENT DATE: 20210101
